FAERS Safety Report 22244571 (Version 1)
Quarter: 2023Q2

REPORT INFORMATION
  Report Type: Spontaneous
  Country: CA (occurrence: CA)
  Receive Date: 20230424
  Receipt Date: 20230424
  Transmission Date: 20230722
  Serious: Yes (Death, Other)
  Sender: FDA-Public Use
  Company Number: CA-ORGANON-O2304CAN002037

PATIENT
  Age: 5 Day
  Weight: 1 kg

DRUGS (4)
  1. COZAAR [Suspect]
     Active Substance: LOSARTAN POTASSIUM
     Indication: Peripartum cardiomyopathy
     Dosage: UNK
     Route: 064
  2. LASIX [Suspect]
     Active Substance: FUROSEMIDE
     Indication: Peripartum cardiomyopathy
     Dosage: UNK, DOSAGE FORM NOT SPECIFIED
     Route: 064
  3. PERINDOPRIL [Suspect]
     Active Substance: PERINDOPRIL
     Indication: Peripartum cardiomyopathy
     Dosage: UNK
     Route: 064
  4. SPIRONOLACTONE [Suspect]
     Active Substance: SPIRONOLACTONE
     Indication: Peripartum cardiomyopathy
     Dosage: UNK
     Route: 064

REACTIONS (5)
  - Apgar score low [Fatal]
  - Foetal exposure during pregnancy [Fatal]
  - Hypocalvaria [Fatal]
  - Low birth weight baby [Fatal]
  - Premature baby [Fatal]
